FAERS Safety Report 7753177-4 (Version None)
Quarter: 2011Q3

REPORT INFORMATION
  Report Type: 
  Country: None (occurrence: None)
  Receive Date: 20110913
  Receipt Date: 20110831
  Transmission Date: 20111222
  Serious: Yes (Hospitalization)
  Sender: FDA-Public Use
  Company Number: CA-2011-1151

PATIENT
  Age: 60 Year
  Sex: Female

DRUGS (3)
  1. NAVELBINE [Suspect]
     Indication: NON-SMALL CELL LUNG CANCER
     Dosage: 50 MG IV
     Route: 042
     Dates: start: 20110316, end: 20110317
  2. CETUXIMAB [Suspect]
     Indication: NON-SMALL CELL LUNG CANCER
     Dosage: 792 MG IV
     Route: 042
     Dates: start: 20110317
  3. CISPLATIN [Suspect]
     Indication: NON-SMALL CELL LUNG CANCER
     Dosage: 158 MG IV
     Route: 042
     Dates: start: 20110316

REACTIONS (6)
  - CONFUSIONAL STATE [None]
  - CEREBRAL ISCHAEMIA [None]
  - DYSPNOEA [None]
  - NEUTROPENIA [None]
  - CAROTID ARTERY STENOSIS [None]
  - DIARRHOEA [None]
